FAERS Safety Report 5157686-6 (Version None)
Quarter: 2006Q4

REPORT INFORMATION
  Report Type: 
  Country: None (occurrence: None)
  Receive Date: 20061115
  Receipt Date: 20061107
  Transmission Date: 20070319
  Serious: Yes (Hospitalization)
  Sender: FDA-Public Use
  Company Number: 2006AL003465

PATIENT
  Age: 76 Year
  Sex: Female

DRUGS (6)
  1. FLUOXETINE [Suspect]
     Indication: DEPRESSION
     Dosage: 8 MG; QD; PO
     Route: 048
     Dates: start: 20060930, end: 20061019
  2. MIRTAZAPINE [Concomitant]
  3. DIAZEPAM [Concomitant]
  4. RANITIDINE [Concomitant]
  5. ENALAPRIL MALEATE [Concomitant]
  6. BENDROFLUAZIDE [Concomitant]

REACTIONS (2)
  - CONDITION AGGRAVATED [None]
  - DEPRESSION [None]
